FAERS Safety Report 4380801-9 (Version None)
Quarter: 2004Q2

REPORT INFORMATION
  Report Type: 
  Country: None (occurrence: None)
  Receive Date: 20040614
  Receipt Date: 20040527
  Transmission Date: 20050107
  Serious: Yes (Hospitalization)
  Sender: FDA-Public Use
  Company Number: 232562K04USA

PATIENT
  Age: 42 Year
  Sex: Female
  Weight: 86.1834 kg

DRUGS (10)
  1. REBIF [Suspect]
     Indication: MULTIPLE SCLEROSIS
     Dates: start: 20030703
  2. METHYLPREDNISOLONE SODIUM SUCCINATE [Suspect]
     Dates: start: 20040101
  3. PREDNISONE [Suspect]
     Dates: start: 20040101, end: 20040201
  4. LEVOTHYROXINE SODIUM [Concomitant]
  5. CALCIUM [Concomitant]
  6. MULTI-VITAMINS [Concomitant]
  7. BACLOFEN [Concomitant]
  8. AMANTADINE HCL [Concomitant]
  9. MIRTAZAPINE [Concomitant]
  10. OESTRANORM [Concomitant]

REACTIONS (8)
  - BLOOD PRESSURE INCREASED [None]
  - BLOOD TRIGLYCERIDES INCREASED [None]
  - DIABETES MELLITUS [None]
  - HEART RATE INCREASED [None]
  - HYPERGLYCAEMIA [None]
  - INJECTION SITE PAIN [None]
  - OPTIC NEURITIS [None]
  - WEIGHT DECREASED [None]
